FAERS Safety Report 10185692 (Version 3)
Quarter: 2014Q2

REPORT INFORMATION
  Report Type: Spontaneous
  Country: FI (occurrence: FI)
  Receive Date: 20140521
  Receipt Date: 20140626
  Transmission Date: 20141212
  Serious: Yes (Hospitalization)
  Sender: FDA-Public Use
  Company Number: PHHY2014FI050754

PATIENT
  Age: 50 Year
  Sex: Male

DRUGS (4)
  1. LEPONEX [Suspect]
     Indication: SCHIZOPHRENIA
     Dosage: 275 MG, DAILY
     Route: 048
     Dates: start: 20131126, end: 20140423
  2. ABSENOR [Concomitant]
     Indication: SCHIZOPHRENIA
     Dosage: 1000 MG, DAILY
     Route: 048
     Dates: start: 20131118, end: 20140423
  3. CITALOPRAM [Concomitant]
     Indication: SCHIZOPHRENIA
     Dosage: 10 MG, DAILY
     Route: 048
     Dates: start: 20140323, end: 20140424
  4. QUETIAPINE [Concomitant]
     Indication: SCHIZOPHRENIA
     Dosage: UNK UKN, (0 TO 200 MG DAILY)
     Route: 048
     Dates: start: 20131119, end: 20140423

REACTIONS (7)
  - Erysipelas [Recovered/Resolved]
  - Intertrigo [Recovered/Resolved]
  - Skin disorder [Recovered/Resolved]
  - Erythema [Recovered/Resolved]
  - Pyrexia [Recovered/Resolved]
  - Leukopenia [Recovered/Resolved]
  - Neutropenia [Recovered/Resolved]
